FAERS Safety Report 20735046 (Version 2)
Quarter: 2022Q2

REPORT INFORMATION
  Report Type: Spontaneous
  Country: US (occurrence: US)
  Receive Date: 20220421
  Receipt Date: 20220503
  Transmission Date: 20220721
  Serious: Yes (Hospitalization, Other)
  Sender: FDA-Public Use
  Company Number: US-TEVA-2022-US-2028331

PATIENT
  Age: 43 Year
  Sex: Female

DRUGS (8)
  1. FLUOROURACIL [Suspect]
     Active Substance: FLUOROURACIL
     Indication: Colon cancer
     Dosage: ADMINISTERED UNDER THE FOLFOX CHEMOTHERAPY REGIMEN
     Route: 065
  2. FLUOROURACIL [Suspect]
     Active Substance: FLUOROURACIL
     Indication: Metastatic neoplasm
  3. LEUCOVORIN [Concomitant]
     Active Substance: LEUCOVORIN
     Indication: Colon cancer
     Dosage: ADMINISTERED UNDER THE FOLFOX CHEMOTHERAPY REGIMEN
     Route: 065
  4. LEUCOVORIN [Concomitant]
     Active Substance: LEUCOVORIN
     Indication: Metastatic neoplasm
  5. OXALIPLATIN [Concomitant]
     Active Substance: OXALIPLATIN
     Indication: Colon cancer
     Dosage: ADMINISTERED UNDER THE FOLFOX CHEMOTHERAPY REGIMEN
     Route: 065
  6. OXALIPLATIN [Concomitant]
     Active Substance: OXALIPLATIN
     Indication: Metastatic neoplasm
  7. CETUXIMAB [Concomitant]
     Active Substance: CETUXIMAB
     Indication: Colon cancer
     Route: 065
  8. CETUXIMAB [Concomitant]
     Active Substance: CETUXIMAB
     Indication: Metastatic neoplasm

REACTIONS (4)
  - Pericardial effusion [Recovered/Resolved]
  - Myopericarditis [Recovered/Resolved]
  - Cardiovascular disorder [Unknown]
  - Endothelial dysfunction [Unknown]
